FAERS Safety Report 9124037 (Version 1)
Quarter: 2013Q1

REPORT INFORMATION
  Report Type: Spontaneous
  Country: US (occurrence: US)
  Receive Date: 20130227
  Receipt Date: 20130227
  Transmission Date: 20140127
  Serious: Yes (Other)
  Sender: FDA-Public Use
  Company Number: US-BAYER-2013-024317

PATIENT
  Sex: 0

DRUGS (1)
  1. AVELOX I.V. [Suspect]
     Dosage: UNK

REACTIONS (3)
  - Anaphylactic shock [None]
  - Diarrhoea [None]
  - Vomiting [None]
